FAERS Safety Report 6194816-1 (Version None)
Quarter: 2009Q2

REPORT INFORMATION
  Report Type: 
  Country: None (occurrence: None)
  Receive Date: 20090515
  Receipt Date: 20090515
  Transmission Date: 20091009
  Serious: Yes (Life-Threatening)
  Sender: FDA-Public Use
  Company Number: None

PATIENT
  Age: 49 Year
  Sex: Female

DRUGS (2)
  1. DARUNAVIR [Suspect]
     Indication: HIV INFECTION
     Dosage: TWICE A DAY ORAL
     Route: 048
     Dates: start: 20090409, end: 20090428
  2. ETRAVIRINE [Suspect]
     Indication: HIV INFECTION
     Dosage: TWICE A DAY ORAL
     Route: 048
     Dates: start: 20090409, end: 20090428

REACTIONS (7)
  - HEPATIC ENCEPHALOPATHY [None]
  - HEPATIC FAILURE [None]
  - HEPATITIS [None]
  - HEPATITIS B ANTIBODY POSITIVE [None]
  - HEPATITIS TOXIC [None]
  - LABORATORY TEST INTERFERENCE [None]
  - RASH [None]
